FAERS Safety Report 21392571 (Version 1)
Quarter: 2022Q3

REPORT INFORMATION
  Report Type: Spontaneous
  Country: GB (occurrence: GB)
  Receive Date: 20220929
  Receipt Date: 20220929
  Transmission Date: 20221027
  Serious: Yes (Death)
  Sender: FDA-Public Use
  Company Number: GB-ROCHE-3181742

PATIENT
  Age: 59 Year
  Sex: Male
  Weight: 62 kg

DRUGS (133)
  1. PERTUZUMAB [Suspect]
     Active Substance: PERTUZUMAB
     Indication: Breast cancer metastatic
     Dosage: 2 INTERNATIONAL UNIT
     Route: 065
  2. PERTUZUMAB [Suspect]
     Active Substance: PERTUZUMAB
     Dosage: 840 MILLIGRAM, Q3WK
     Route: 065
     Dates: start: 20150930
  3. PERTUZUMAB [Suspect]
     Active Substance: PERTUZUMAB
     Dosage: 840 UNK
     Route: 065
     Dates: start: 20151021
  4. PERTUZUMAB [Suspect]
     Active Substance: PERTUZUMAB
     Dosage: 420 MILLIGRAM, Q3WK
     Route: 065
     Dates: start: 20151021
  5. TRASTUZUMAB [Suspect]
     Active Substance: TRASTUZUMAB
     Indication: Breast cancer metastatic
     Dosage: 1218 MILLIGRAM, QWK
     Route: 065
     Dates: start: 20150930
  6. TRASTUZUMAB [Suspect]
     Active Substance: TRASTUZUMAB
     Dosage: 609 MILLIGRAM, Q3WK
     Route: 065
     Dates: start: 20150930
  7. PACLITAXEL [Suspect]
     Active Substance: PACLITAXEL
     Indication: Breast cancer metastatic
     Dosage: 150 MILLIGRAM
     Route: 065
     Dates: start: 20151111, end: 20151222
  8. PACLITAXEL [Suspect]
     Active Substance: PACLITAXEL
     Dosage: 120 MILLIGRAM, QWK
     Route: 065
     Dates: start: 20151111
  9. PACLITAXEL [Suspect]
     Active Substance: PACLITAXEL
     Dosage: 120 MILLIGRAM
     Route: 065
     Dates: start: 20151223, end: 20151223
  10. ARIPIPRAZOLE [Suspect]
     Active Substance: ARIPIPRAZOLE
     Indication: Schizophrenia
     Dosage: 5 MILLIGRAM
     Route: 048
  11. ARIPIPRAZOLE [Suspect]
     Active Substance: ARIPIPRAZOLE
     Dosage: UNK
     Route: 048
  12. ARIPIPRAZOLE [Suspect]
     Active Substance: ARIPIPRAZOLE
     Dosage: 5 MILLIGRAM
     Route: 048
  13. ARIPIPRAZOLE [Suspect]
     Active Substance: ARIPIPRAZOLE
     Dosage: 5 MILLIGRAM
     Route: 048
  14. ARIPIPRAZOLE [Suspect]
     Active Substance: ARIPIPRAZOLE
     Dosage: 5 MILLIGRAM
     Route: 048
  15. CHLORPROMAZINE [Suspect]
     Active Substance: CHLORPROMAZINE
     Indication: Schizophrenia
     Dosage: 75 MILLIGRAM
     Route: 048
  16. CHLORPROMAZINE [Suspect]
     Active Substance: CHLORPROMAZINE
     Dosage: 75 MILLIGRAM
     Route: 048
  17. CHLORPROMAZINE [Suspect]
     Active Substance: CHLORPROMAZINE
     Dosage: 75 MILLIGRAM
     Route: 048
  18. CHLORPROMAZINE [Suspect]
     Active Substance: CHLORPROMAZINE
     Dosage: 75 MILLIGRAM
     Route: 048
  19. CHLORPROMAZINE [Suspect]
     Active Substance: CHLORPROMAZINE
     Dosage: 75 MILLIGRAM
     Route: 048
  20. ZUCLOPENTHIXOL [Suspect]
     Active Substance: ZUCLOPENTHIXOL
     Indication: Product used for unknown indication
     Dosage: 400 MILLIGRAM, QWK
     Route: 030
  21. ZUCLOPENTHIXOL [Suspect]
     Active Substance: ZUCLOPENTHIXOL
     Dosage: 300 MILLIGRAM, QWK
     Route: 030
     Dates: start: 20091009
  22. ZUCLOPENTHIXOL [Suspect]
     Active Substance: ZUCLOPENTHIXOL
     Dosage: 800 MILLIGRAM, QWK
     Route: 030
     Dates: start: 20041018, end: 20041018
  23. ZUCLOPENTHIXOL [Suspect]
     Active Substance: ZUCLOPENTHIXOL
     Dosage: 400 MILLIGRAM
     Route: 030
     Dates: start: 20041018, end: 20041018
  24. ZUCLOPENTHIXOL [Suspect]
     Active Substance: ZUCLOPENTHIXOL
     Dosage: 400 MILLIGRAM
     Route: 030
     Dates: start: 20091018
  25. ZUCLOPENTHIXOL [Suspect]
     Active Substance: ZUCLOPENTHIXOL
     Dosage: 800 MILLIGRAM, QWK
     Route: 030
     Dates: start: 20030204, end: 20040217
  26. ZUCLOPENTHIXOL [Suspect]
     Active Substance: ZUCLOPENTHIXOL
     Dosage: 800 MILLIGRAM, QWK
     Route: 030
     Dates: start: 20040601, end: 20041018
  27. ZUCLOPENTHIXOL [Suspect]
     Active Substance: ZUCLOPENTHIXOL
     Dosage: 300 MILLIGRAM, QD
     Route: 030
     Dates: start: 20091009
  28. ZUCLOPENTHIXOL [Suspect]
     Active Substance: ZUCLOPENTHIXOL
     Dosage: 400 MILLIGRAM
     Route: 030
     Dates: start: 20041018, end: 20041018
  29. ZUCLOPENTHIXOL [Suspect]
     Active Substance: ZUCLOPENTHIXOL
     Dosage: 300 MILLIGRAM, QWK
     Route: 030
  30. ZUCLOPENTHIXOL [Suspect]
     Active Substance: ZUCLOPENTHIXOL
     Dosage: 400 MILLIGRAM
     Route: 030
     Dates: start: 20040217, end: 20040601
  31. ZUCLOPENTHIXOL [Suspect]
     Active Substance: ZUCLOPENTHIXOL
     Dosage: 300 MILLIGRAM, QWK
     Route: 030
     Dates: start: 20091018
  32. ZUCLOPENTHIXOL [Suspect]
     Active Substance: ZUCLOPENTHIXOL
     Dosage: 400 MILLIGRAM
     Route: 030
     Dates: end: 20040601
  33. ZUCLOPENTHIXOL [Suspect]
     Active Substance: ZUCLOPENTHIXOL
     Dosage: 800 MILLIGRAM, QWK
     Route: 030
     Dates: end: 20040217
  34. ZUCLOPENTHIXOL [Suspect]
     Active Substance: ZUCLOPENTHIXOL
     Dosage: UNK
     Route: 030
  35. ZUCLOPENTHIXOL [Suspect]
     Active Substance: ZUCLOPENTHIXOL
     Dosage: 400 MILLIGRAM
     Route: 030
     Dates: end: 20041018
  36. ZUCLOPENTHIXOL [Suspect]
     Active Substance: ZUCLOPENTHIXOL
     Dosage: 400 MILLIGRAM, QWK
     Route: 030
     Dates: start: 20030204, end: 20040217
  37. ZUCLOPENTHIXOL [Suspect]
     Active Substance: ZUCLOPENTHIXOL
     Dosage: 400 MILLIGRAM
     Route: 030
  38. ZUCLOPENTHIXOL [Suspect]
     Active Substance: ZUCLOPENTHIXOL
     Dosage: 400 MILLIGRAM
     Route: 030
     Dates: start: 20040601, end: 20041018
  39. ZUCLOPENTHIXOL [Suspect]
     Active Substance: ZUCLOPENTHIXOL
     Dosage: 800 MILLIGRAM, QWK
     Route: 030
     Dates: start: 20030204, end: 20040217
  40. ZUCLOPENTHIXOL [Suspect]
     Active Substance: ZUCLOPENTHIXOL
     Dosage: 400 MILLIGRAM, QWK
     Route: 030
     Dates: start: 20040217, end: 20040601
  41. CLOZARIL [Suspect]
     Active Substance: CLOZAPINE
     Indication: Schizophrenia
     Dosage: 300 MILLIGRAM
     Route: 065
     Dates: start: 20100823
  42. CLOZARIL [Suspect]
     Active Substance: CLOZAPINE
     Dosage: 400 MILLIGRAM, QD
     Route: 065
  43. CLOZARIL [Suspect]
     Active Substance: CLOZAPINE
     Dosage: 6000 UNK
     Route: 048
     Dates: start: 20201207
  44. CLOZARIL [Suspect]
     Active Substance: CLOZAPINE
     Dosage: UNK
     Route: 048
     Dates: start: 20191209, end: 20191223
  45. CLOZARIL [Suspect]
     Active Substance: CLOZAPINE
     Dosage: 275 MILLIGRAM, QD
     Route: 048
  46. CLOZARIL [Suspect]
     Active Substance: CLOZAPINE
     Dosage: UNK
     Route: 048
     Dates: start: 20191223, end: 20191223
  47. CLOZARIL [Suspect]
     Active Substance: CLOZAPINE
     Dosage: 200 UNK
     Route: 065
  48. HALOPERIDOL [Suspect]
     Active Substance: HALOPERIDOL
     Indication: Schizophrenia
     Dosage: 40 MILLIGRAM, QD
     Route: 048
  49. HALOPERIDOL [Suspect]
     Active Substance: HALOPERIDOL
     Dosage: 5 MILLIGRAM, BID
     Route: 048
  50. HALOPERIDOL [Suspect]
     Active Substance: HALOPERIDOL
     Dosage: 20 MILLIGRAM, Q12H
     Route: 048
  51. HALOPERIDOL [Suspect]
     Active Substance: HALOPERIDOL
     Dosage: 5 MILLIGRAM, QD
     Route: 048
  52. HALOPERIDOL [Suspect]
     Active Substance: HALOPERIDOL
     Dosage: 20 MILLIGRAM
     Route: 048
  53. HALOPERIDOL [Suspect]
     Active Substance: HALOPERIDOL
     Dosage: 10 MILLIGRAM, QD
     Route: 048
  54. HALOPERIDOL [Suspect]
     Active Substance: HALOPERIDOL
     Dosage: 10 MILLIGRAM, QD
     Route: 048
  55. HALOPERIDOL [Suspect]
     Active Substance: HALOPERIDOL
     Dosage: 5 MILLIGRAM, BID
     Route: 048
  56. HALOPERIDOL [Suspect]
     Active Substance: HALOPERIDOL
     Dosage: 5 MILLIGRAM, QD
     Route: 048
  57. HALOPERIDOL [Suspect]
     Active Substance: HALOPERIDOL
     Dosage: 10 MILLIGRAM, QD
     Route: 048
  58. HALOPERIDOL [Suspect]
     Active Substance: HALOPERIDOL
     Dosage: 40 MILLIGRAM, QD
     Route: 048
  59. HALOPERIDOL [Suspect]
     Active Substance: HALOPERIDOL
     Dosage: 20 MILLIGRAM, BID
     Route: 048
  60. HALOPERIDOL [Suspect]
     Active Substance: HALOPERIDOL
     Dosage: 20 MILLIGRAM, QD
     Route: 048
  61. HALOPERIDOL [Suspect]
     Active Substance: HALOPERIDOL
     Dosage: 40 MILLIGRAM, QD
     Route: 048
  62. HALOPERIDOL [Suspect]
     Active Substance: HALOPERIDOL
     Dosage: 20 MILLIGRAM, QD
     Route: 048
  63. HALOPERIDOL [Suspect]
     Active Substance: HALOPERIDOL
     Dosage: 5 MILLIGRAM, BID
     Route: 048
  64. HALOPERIDOL [Suspect]
     Active Substance: HALOPERIDOL
     Dosage: 10 MILLIGRAM, QD
     Route: 048
  65. LORAZEPAM [Suspect]
     Active Substance: LORAZEPAM
     Indication: Schizophrenia
     Dosage: 1 MILLIGRAM
     Route: 048
  66. LORAZEPAM [Suspect]
     Active Substance: LORAZEPAM
     Dosage: 1 MILLIGRAM
     Route: 048
  67. LITHIUM [Suspect]
     Active Substance: LITHIUM
     Indication: Product used for unknown indication
     Dosage: 2 GRAM
     Route: 048
  68. LITHIUM [Suspect]
     Active Substance: LITHIUM
     Dosage: 1 MILLIGRAM
     Route: 048
  69. LITHIUM [Suspect]
     Active Substance: LITHIUM
     Dosage: 6 MILLIGRAM, QD
     Route: 048
  70. LITHIUM [Suspect]
     Active Substance: LITHIUM
     Dosage: 1 GRAM
     Route: 048
  71. LITHIUM [Suspect]
     Active Substance: LITHIUM
     Dosage: 1 GRAM
     Route: 048
  72. RISPERIDONE [Suspect]
     Active Substance: RISPERIDONE
     Indication: Schizophrenia
     Dosage: 4 MILLIGRAM, QD
     Route: 048
  73. RISPERIDONE [Suspect]
     Active Substance: RISPERIDONE
     Dosage: 6 MILLIGRAM, QD
     Route: 048
  74. RISPERIDONE [Suspect]
     Active Substance: RISPERIDONE
     Dosage: 4 MILLIGRAM, QD
     Route: 048
  75. RISPERIDONE [Suspect]
     Active Substance: RISPERIDONE
     Dosage: 1 MILLIGRAM
     Route: 048
  76. RISPERIDONE [Suspect]
     Active Substance: RISPERIDONE
     Dosage: 1 GRAM, QD
     Route: 048
  77. RISPERIDONE [Suspect]
     Active Substance: RISPERIDONE
     Dosage: 2 MILLIGRAM, QD
     Route: 048
  78. RISPERIDONE [Suspect]
     Active Substance: RISPERIDONE
     Dosage: 3 MILLIGRAM, QD
     Route: 048
  79. RISPERDAL [Suspect]
     Active Substance: RISPERIDONE
     Indication: Schizophrenia
     Dosage: 1 GRAM, QD
     Route: 048
  80. RISPERDAL [Suspect]
     Active Substance: RISPERIDONE
     Dosage: 1 MILLIGRAM, QD
     Route: 048
  81. RISPERDAL [Suspect]
     Active Substance: RISPERIDONE
     Dosage: 3 MILLIGRAM
     Route: 048
  82. RISPERDAL [Suspect]
     Active Substance: RISPERIDONE
     Dosage: 3 MILLIGRAM, Q12H
     Route: 048
  83. RISPERDAL [Suspect]
     Active Substance: RISPERIDONE
     Dosage: 3 MILLIGRAM, BID
     Route: 048
  84. RISPERDAL [Suspect]
     Active Substance: RISPERIDONE
     Dosage: 6 MILLIGRAM, QD
     Route: 048
  85. RISPERDAL [Suspect]
     Active Substance: RISPERIDONE
     Dosage: 1 GRAM, QD
     Route: 048
  86. RISPERDAL [Suspect]
     Active Substance: RISPERIDONE
     Dosage: 4 MILLIGRAM, BID
     Route: 048
  87. RISPERDAL [Suspect]
     Active Substance: RISPERIDONE
     Dosage: 4 MILLIGRAM, QD
     Route: 048
  88. RISPERDAL [Suspect]
     Active Substance: RISPERIDONE
     Dosage: 3 MILLIGRAM, BID
     Route: 048
  89. RISPERDAL [Suspect]
     Active Substance: RISPERIDONE
     Dosage: 1 GRAM, QD
     Route: 048
  90. RISPERDAL [Suspect]
     Active Substance: RISPERIDONE
     Dosage: 1 GRAM, QD
     Route: 048
  91. RISPERDAL [Suspect]
     Active Substance: RISPERIDONE
     Dosage: 2 MILLIGRAM
     Route: 048
  92. RISPERDAL [Suspect]
     Active Substance: RISPERIDONE
     Dosage: 1 GRAM, QD
     Route: 048
  93. RISPERDAL [Suspect]
     Active Substance: RISPERIDONE
     Dosage: 1 MILLIGRAM, QD
     Route: 048
  94. RISPERDAL [Suspect]
     Active Substance: RISPERIDONE
     Dosage: 4 MILLIGRAM, QD
     Route: 048
  95. RISPERDAL [Suspect]
     Active Substance: RISPERIDONE
     Dosage: 6 MILLIGRAM, BID
     Route: 048
  96. RISPERDAL [Suspect]
     Active Substance: RISPERIDONE
     Dosage: 1 MILLIGRAM, QD
     Route: 048
  97. RISPERDAL [Suspect]
     Active Substance: RISPERIDONE
     Dosage: 4 MILLIGRAM, BID
     Route: 048
  98. RISPERDAL [Suspect]
     Active Substance: RISPERIDONE
     Dosage: 6 MILLIGRAM, QD
     Route: 048
  99. RISPERDAL [Suspect]
     Active Substance: RISPERIDONE
     Dosage: 2 MILLIGRAM, BID
     Route: 048
  100. RISPERDAL [Suspect]
     Active Substance: RISPERIDONE
     Dosage: 6 MILLIGRAM, QD
     Route: 048
  101. RISPERDAL [Suspect]
     Active Substance: RISPERIDONE
     Dosage: 2 MILLIGRAM
     Route: 048
  102. RISPERDAL [Suspect]
     Active Substance: RISPERIDONE
     Dosage: 4 MILLIGRAM, QD
     Route: 048
  103. RISPERDAL [Suspect]
     Active Substance: RISPERIDONE
     Dosage: 4 MILLIGRAM, BID
     Route: 048
  104. RISPERDAL [Suspect]
     Active Substance: RISPERIDONE
     Dosage: 1 GRAM, QD
     Route: 048
  105. ZUCLOPENTHIXOL [Suspect]
     Active Substance: ZUCLOPENTHIXOL
     Indication: Product used for unknown indication
     Dosage: 400 MILLIGRAM
     Route: 048
     Dates: start: 20040217, end: 20040601
  106. DOCETAXEL [Suspect]
     Active Substance: DOCETAXEL
     Indication: Breast cancer metastatic
     Route: 065
     Dates: start: 20150930, end: 20151021
  107. DOCETAXEL [Suspect]
     Active Substance: DOCETAXEL
     Route: 065
     Dates: start: 20151222
  108. OLANZAPINE [Suspect]
     Active Substance: OLANZAPINE
     Indication: Schizophrenia
     Route: 048
  109. OLANZAPINE [Suspect]
     Active Substance: OLANZAPINE
     Route: 048
     Dates: start: 20060704
  110. OLANZAPINE [Suspect]
     Active Substance: OLANZAPINE
     Route: 048
     Dates: start: 20040217
  111. OLANZAPINE [Suspect]
     Active Substance: OLANZAPINE
     Route: 048
  112. OLANZAPINE [Suspect]
     Active Substance: OLANZAPINE
     Dosage: 2.5 MG
     Route: 048
     Dates: start: 20080823
  113. CHLORPHENIRAMINE MALEATE [Concomitant]
     Active Substance: CHLORPHENIRAMINE MALEATE
     Indication: Product used for unknown indication
     Dosage: 10 MILLIGRAM, QWK
     Dates: start: 20151111
  114. CHOLECALCIFEROL [Concomitant]
     Active Substance: CHOLECALCIFEROL
     Indication: Product used for unknown indication
     Dosage: 2 DOSAGE FORM, QD
  115. CALCIUM\CHOLECALCIFEROL [Concomitant]
     Active Substance: CALCIUM\CHOLECALCIFEROL
     Indication: Product used for unknown indication
     Dosage: 2 DOSAGE FORM, QD
  116. AMOXICILLIN\CLAVULANATE POTASSIUM [Concomitant]
     Active Substance: AMOXICILLIN\CLAVULANATE POTASSIUM
     Indication: Febrile neutropenia
     Dosage: 625 MG, QID
     Dates: start: 20151122
  117. AMOXICILLIN\CLAVULANATE POTASSIUM [Concomitant]
     Active Substance: AMOXICILLIN\CLAVULANATE POTASSIUM
     Dosage: 625 MG (EVERY 0.33 DAYS, CUMULATIVE DOSE: 16875)
     Dates: start: 20151122, end: 20151125
  118. DULOXETINE [Concomitant]
     Active Substance: DULOXETINE
     Indication: Product used for unknown indication
     Dosage: UNK
  119. GENTAMICIN [Concomitant]
     Active Substance: GENTAMICIN
     Indication: Febrile neutropenia
     Dosage: UNK
     Dates: start: 20151121, end: 201511
  120. LEVOFLOXACIN [Concomitant]
     Active Substance: LEVOFLOXACIN
     Indication: Febrile neutropenia
     Dosage: 500 MILLIGRAM, QD
     Dates: start: 20151125
  121. MIRTAZAPINE [Concomitant]
     Active Substance: MIRTAZAPINE
     Indication: Product used for unknown indication
     Dosage: 15 MILLIGRAM, QD
     Dates: start: 201510
  122. MORPHINE [Concomitant]
     Active Substance: MORPHINE
     Indication: Pain
     Dosage: 60 MILLIGRAM, QD
     Dates: start: 201509
  123. MORPHINE [Concomitant]
     Active Substance: MORPHINE
     Dosage: 30 MILLIGRAM
     Dates: start: 201509
  124. MORPHINE SULFATE [Concomitant]
     Active Substance: MORPHINE SULFATE
     Indication: Product used for unknown indication
     Dosage: 10 MILLIGRAM
     Dates: start: 201509
  125. PREGABALIN [Concomitant]
     Active Substance: PREGABALIN
     Indication: Product used for unknown indication
     Dosage: 75 MILLIGRAM, EVERY 0.5 DAY
     Dates: start: 201509
  126. PREGABALIN [Concomitant]
     Active Substance: PREGABALIN
     Dosage: 150 MILLIGRAM, QD
     Dates: start: 201509
  127. RANITIDINE [Concomitant]
     Active Substance: RANITIDINE
     Indication: Gastrooesophageal reflux disease
     Dosage: 50 MILLIGRAM, QWK
     Route: 065
  128. RANITIDINE [Concomitant]
     Active Substance: RANITIDINE
     Dosage: 50 MILLIGRAM, QWK
     Route: 065
     Dates: start: 20151111
  129. TAZOBACTAM SODIUM [Concomitant]
     Active Substance: TAZOBACTAM SODIUM
     Indication: Febrile neutropenia
     Dosage: UNK
     Dates: start: 20151121
  130. PIPERACILLIN SODIUM\TAZOBACTAM SODIUM [Concomitant]
     Active Substance: PIPERACILLIN SODIUM\TAZOBACTAM SODIUM
     Indication: Febrile neutropenia
     Dosage: UNK
     Dates: start: 20151121, end: 201511
  131. DENOSUMAB [Concomitant]
     Active Substance: DENOSUMAB
     Indication: Gastrooesophageal reflux disease
     Dosage: 120 MILLIGRAM
     Dates: start: 20150930
  132. DENOSUMAB [Concomitant]
     Active Substance: DENOSUMAB
     Indication: Metastases to bone
  133. ACETAMINOPHEN [Concomitant]
     Active Substance: ACETAMINOPHEN
     Indication: Pain
     Dates: start: 20150127

REACTIONS (17)
  - Incorrect dose administered [Fatal]
  - Affective disorder [Fatal]
  - Neutrophil count increased [Fatal]
  - Platelet count decreased [Fatal]
  - Extrapyramidal disorder [Fatal]
  - COVID-19 [Fatal]
  - Hallucination, auditory [Fatal]
  - Leukopenia [Fatal]
  - Lymphocyte count decreased [Fatal]
  - Psychotic disorder [Fatal]
  - Schizophrenia [Fatal]
  - Fatigue [Fatal]
  - Delusion of grandeur [Fatal]
  - Disease progression [Fatal]
  - Neutropenia [Fatal]
  - Off label use [Fatal]
  - Seizure [Fatal]

NARRATIVE: CASE EVENT DATE: 20190101
